FAERS Safety Report 5287805-2 (Version None)
Quarter: 2007Q2

REPORT INFORMATION
  Report Type: 
  Country: None (occurrence: None)
  Receive Date: 20070402
  Receipt Date: 20070402
  Transmission Date: 20071010
  Serious: Yes (Hospitalization)
  Sender: FDA-Public Use
  Company Number: None

PATIENT
  Sex: Female
  Weight: 105 kg

DRUGS (3)
  1. IBANDRONATE SODIUM (BONIVA) [Suspect]
     Dosage: 650 MG
  2. CALCIUM [Concomitant]
  3. VITAMIN D [Concomitant]

REACTIONS (1)
  - NEPHROLITHIASIS [None]
